FAERS Safety Report 4331689-3 (Version None)
Quarter: 2004Q2

REPORT INFORMATION
  Report Type: 
  Country: None (occurrence: None)
  Receive Date: 20040405
  Receipt Date: 20030128
  Transmission Date: 20050107
  Serious: No
  Sender: FDA-Public Use
  Company Number: US-GLAXOSMITHKLINE-A0394322A

PATIENT
  Age: 4 Year
  Sex: Female

DRUGS (8)
  1. FLOVENT [Suspect]
     Indication: ASTHMA
     Dosage: 4PUFF TWICE PER DAY
     Route: 055
     Dates: start: 19990201, end: 20000101
  2. SEREVENT [Suspect]
     Indication: ASTHMA
     Route: 055
     Dates: start: 20000101
  3. RHINOCORT [Suspect]
     Route: 045
     Dates: start: 20010101
  4. ALBUTEROL [Concomitant]
     Route: 065
  5. CLARITIN [Concomitant]
  6. ZYRTEC [Concomitant]
  7. ZOLADEX [Concomitant]
  8. PREDNISONE [Concomitant]
     Route: 048

REACTIONS (5)
  - DENTAL CARIES [None]
  - EAR INFECTION [None]
  - EPISTAXIS [None]
  - GROWTH RETARDATION [None]
  - WEIGHT GAIN POOR [None]
